FAERS Safety Report 6358149-2 (Version None)
Quarter: 2009Q3

REPORT INFORMATION
  Report Type: 
  Country: None (occurrence: None)
  Receive Date: 20090916
  Receipt Date: 20090904
  Transmission Date: 20100115
  Serious: No
  Sender: FDA-Public Use
  Company Number: GB-ASTRAZENECA-2009SE05113

PATIENT
  Age: 808 Month
  Sex: Female
  Weight: 75 kg

DRUGS (9)
  1. SEROQUEL [Suspect]
     Indication: MANIA
     Route: 048
  2. SEROQUEL [Suspect]
     Route: 048
  3. SEROQUEL [Suspect]
     Route: 048
     Dates: start: 20090701
  4. DEPAKOTE [Suspect]
     Indication: MANIA
  5. ASPIRIN [Concomitant]
  6. LEVOTHYROXINE SODIUM [Concomitant]
  7. RANITIDINE [Concomitant]
  8. GTN SIL [Concomitant]
  9. DILTIAZEM [Concomitant]

REACTIONS (3)
  - DISEASE RECURRENCE [None]
  - FALL [None]
  - TREMOR [None]
